FAERS Safety Report 20860838 (Version 2)
Quarter: 2022Q2

REPORT INFORMATION
  Report Type: Spontaneous
  Country: CO (occurrence: CO)
  Receive Date: 20220523
  Receipt Date: 20220617
  Transmission Date: 20220721
  Serious: Yes (Other)
  Sender: FDA-Public Use
  Company Number: CO-PFIZER INC-202200707955

PATIENT
  Age: 63 Year
  Sex: Female

DRUGS (1)
  1. GENOTROPIN [Suspect]
     Active Substance: SOMATROPIN
     Indication: Growth hormone deficiency
     Dosage: UNK
     Route: 058
     Dates: start: 2010

REACTIONS (3)
  - Toxic skin eruption [Unknown]
  - Vasculitis [Unknown]
  - Lichen planus [Unknown]
